FAERS Safety Report 16954171 (Version 1)
Quarter: 2019Q4

REPORT INFORMATION
  Report Type: Spontaneous
  Country: US (occurrence: US)
  Receive Date: 20191023
  Receipt Date: 20191023
  Transmission Date: 20200122
  Serious: Yes (Hospitalization, Other)
  Sender: FDA-Public Use
  Company Number: NVSC2019US012580

PATIENT
  Age: 8 Month
  Sex: Male
  Weight: 6.4 kg

DRUGS (1)
  1. TREPROSTINIL. [Suspect]
     Active Substance: TREPROSTINIL
     Indication: PULMONARY HYPERTENSION
     Dosage: UNK,TITRATED TO A  MAXIMAL DOSE OF 50 NG PER KG PER MINUTE
     Route: 042

REACTIONS (1)
  - Pulmonary vascular resistance abnormality [Unknown]
